FAERS Safety Report 9461288 (Version 4)
Quarter: 2013Q4

REPORT INFORMATION
  Report Type: Spontaneous
  Country: US (occurrence: US)
  Receive Date: 20130816
  Receipt Date: 20131029
  Transmission Date: 20140711
  Serious: No
  Sender: FDA-Public Use
  Company Number: US-PFIZER INC-2013236677

PATIENT
  Age: 61 Year
  Sex: Female
  Weight: 144 kg

DRUGS (11)
  1. SUTENT [Suspect]
     Indication: RENAL CANCER
     Dosage: 50 MG, DAILY
     Dates: start: 20130805
  2. JANUVIA [Concomitant]
     Indication: DIABETES MELLITUS
     Dosage: UNK
  3. BYETTA [Concomitant]
     Indication: DIABETES MELLITUS
     Dosage: UNK
  4. LOSARTAN [Concomitant]
     Indication: HYPERTENSION
     Dosage: UNK
  5. FENOFIBRATE [Concomitant]
     Indication: BLOOD CHOLESTEROL INCREASED
     Dosage: UNK
  6. ZOLOFT [Concomitant]
     Dosage: UNK
  7. PRILOSEC [Concomitant]
     Dosage: UNK
  8. ALBUTEROL [Concomitant]
     Dosage: UNK
  9. LASIX [Concomitant]
     Dosage: UNK
  10. POTASSIUM [Concomitant]
     Dosage: UNK
  11. HYDROCHLOROTHIAZIDE/LOSARTAN [Concomitant]
     Dosage: UNK

REACTIONS (29)
  - Back pain [Unknown]
  - Pain in extremity [Unknown]
  - Dyspepsia [Unknown]
  - Flatulence [Unknown]
  - Abdominal discomfort [Recovered/Resolved]
  - Epistaxis [Unknown]
  - Mouth haemorrhage [Unknown]
  - Glossodynia [Not Recovered/Not Resolved]
  - Stomatitis [Unknown]
  - Vomiting [Not Recovered/Not Resolved]
  - Diarrhoea [Not Recovered/Not Resolved]
  - Fatigue [Unknown]
  - Decreased appetite [Unknown]
  - Dysgeusia [Unknown]
  - Dyspnoea [Unknown]
  - Weight decreased [Unknown]
  - Nausea [Unknown]
  - Gait disturbance [Unknown]
  - Blood creatinine increased [Recovering/Resolving]
  - Anaemia [Recovering/Resolving]
  - Sleep disorder [Unknown]
  - Blood glucose increased [Recovering/Resolving]
  - Oral pain [Not Recovered/Not Resolved]
  - Dysphagia [Unknown]
  - Speech disorder [Unknown]
  - Palmar-plantar erythrodysaesthesia syndrome [Unknown]
  - Dry mouth [Unknown]
  - Rash [Unknown]
  - Oropharyngeal pain [Unknown]
